FAERS Safety Report 9501104 (Version 1)
Quarter: 2013Q1

REPORT INFORMATION
  Report Type: Spontaneous
  Country: US (occurrence: None)
  Receive Date: 20130117
  Receipt Date: 20130117
  Transmission Date: 20140127
  Serious: No
  Sender: FDA-Public Use
  Company Number: 1210USA006936

PATIENT
  Age: 56 Year
  Sex: Female

DRUGS (4)
  1. DULERA [Suspect]
     Indication: ASTHMA
     Dosage: 200/5, 2DF, BID, RESPIRATORY
     Dates: start: 201110
  2. ALLERGENIC EXTRACT [Suspect]
     Indication: HYPERSENSITIVITY
  3. CICLESONIDE (CICLESONIDE) [Concomitant]
  4. PULMICORT (BUDESONIDE) [Concomitant]

REACTIONS (4)
  - Heart rate increased [None]
  - Tremor [None]
  - Blood pressure increased [None]
  - Respiratory tract infection [None]
